FAERS Safety Report 5605450-3 (Version None)
Quarter: 2008Q1

REPORT INFORMATION
  Report Type: 
  Country: None (occurrence: None)
  Receive Date: 20080123
  Receipt Date: 20080107
  Transmission Date: 20080703
  Serious: Yes (Hospitalization)
  Sender: FDA-Public Use
  Company Number: 2007EU002744

PATIENT
  Age: 12 Year
  Sex: Male

DRUGS (3)
  1. PROGRAF [Suspect]
     Indication: NEPHROPATHY
     Dosage: ORAL
     Dates: start: 20071116, end: 20071120
  2. PROGRAF [Suspect]
     Indication: NEPHROPATHY
     Dosage: ORAL
     Dates: start: 20071121
  3. ENALAPRIL MALEATE [Suspect]
     Indication: NEPHROPATHY
     Dosage: ORAL
     Route: 048
     Dates: start: 20071116

REACTIONS (5)
  - ANAPHYLACTOID REACTION [None]
  - FEELING HOT [None]
  - MALAISE [None]
  - TREMOR [None]
  - VASODILATATION [None]
